FAERS Safety Report 4361041-6 (Version None)
Quarter: 2004Q2

REPORT INFORMATION
  Report Type: 
  Country: None (occurrence: None)
  Receive Date: 20040514
  Receipt Date: 20040505
  Transmission Date: 20050107
  Serious: Yes (Death, Other)
  Sender: FDA-Public Use
  Company Number: 2004-05-0084

PATIENT
  Age: 90 Year
  Sex: Female
  Weight: 65 kg

DRUGS (12)
  1. PALACOS R GENTAMICINE CEMENT IMPLANT [Suspect]
     Indication: HIP SURGERY
     Dosage: IMPLANT
     Dates: start: 20040429, end: 20040429
  2. KEFZOL [Concomitant]
  3. ADRENALIN IN OIL INJ [Concomitant]
  4. ATROPINE [Concomitant]
  5. ROCURONIUM BROMIDE [Concomitant]
  6. MARCOUMAR [Concomitant]
  7. MIXTARD HUMAN 70/30 [Concomitant]
  8. EPHEDRIN [Concomitant]
  9. NORADRENALINE [Concomitant]
  10. ETOMIDATE [Concomitant]
  11. DORMICUM ^ROCHE^ [Concomitant]
  12. FENTANYL [Concomitant]

REACTIONS (1)
  - CARDIAC ARREST [None]
